FAERS Safety Report 8080881-3 (Version None)
Quarter: 2012Q1

REPORT INFORMATION
  Report Type: 
  Country: None (occurrence: None)
  Receive Date: 20120130
  Receipt Date: 20120120
  Transmission Date: 20120608
  Serious: Yes (Other)
  Sender: FDA-Public Use
  Company Number: US-BAYER-201025779NA

PATIENT
  Age: 25 Year
  Sex: Female
  Weight: 44.444 kg

DRUGS (11)
  1. ANTIMIGRAINE PREPARATIONS [Concomitant]
     Dosage: UNK
     Dates: start: 20060101
  2. ALBUTEROL INHALER [Concomitant]
     Dosage: UNK
     Dates: start: 20050101
  3. YAZ [Suspect]
     Dosage: UNK
     Dates: start: 20070101
  4. NSAID'S [Concomitant]
  5. SULFAMETH [Concomitant]
     Dosage: 800 NOT APPL., UNK
     Dates: start: 20080410
  6. YAZ [Suspect]
     Dosage: UNK
     Dates: start: 20080410
  7. YASMIN [Suspect]
     Route: 048
  8. TRIMETHOPRIM [Concomitant]
     Dosage: 160 NOT APPLICABLE, UNK
     Dates: start: 20080410
  9. DEPAKOTE [Concomitant]
     Indication: MIGRAINE PROPHYLAXIS
     Dosage: UNK
     Dates: start: 20080512
  10. DROSPIRENONE AND ETHINYL ESTRADIOL [Suspect]
     Route: 048
  11. YAZ [Suspect]
     Indication: PREMENSTRUAL SYNDROME
     Dosage: UNK
     Route: 048
     Dates: start: 20060101

REACTIONS (3)
  - ISCHAEMIC STROKE [None]
  - APHASIA [None]
  - TRANSIENT ISCHAEMIC ATTACK [None]
